FAERS Safety Report 10599362 (Version 1)
Quarter: 2014Q4

REPORT INFORMATION
  Report Type: Spontaneous
  Country: US (occurrence: US)
  Receive Date: 20141121
  Receipt Date: 20141121
  Transmission Date: 20150529
  Serious: Yes (Hospitalization, Other)
  Sender: FDA-Public Use
  Company Number: US-GLAXOSMITHKLINE-US2014GSK024274

PATIENT
  Age: 74 Year
  Sex: Male

DRUGS (15)
  1. VOTRIENT [Suspect]
     Active Substance: PAZOPANIB HYDROCHLORIDE
     Indication: RENAL CANCER
     Dosage: 400 MG, QD
     Route: 048
     Dates: start: 2013
  2. ATORVASTATIN [Concomitant]
     Active Substance: ATORVASTATIN
  3. LEVOTHYROXINE [Concomitant]
     Active Substance: LEVOTHYROXINE
  4. VITAMIN D3 [Concomitant]
     Active Substance: CHOLECALCIFEROL
  5. CARVEDILOL. [Concomitant]
     Active Substance: CARVEDILOL
  6. HYDROCORTISONE. [Concomitant]
     Active Substance: HYDROCORTISONE
  7. LASIX [Concomitant]
     Active Substance: FUROSEMIDE
  8. MORPHINE [Concomitant]
     Active Substance: MORPHINE
  9. STOOL SOFTENER [Concomitant]
     Active Substance: DOCUSATE CALCIUM
  10. HUMALOG [Concomitant]
     Active Substance: INSULIN LISPRO
  11. PROTONIX [Concomitant]
     Active Substance: PANTOPRAZOLE SODIUM
  12. GABAPENTIN. [Concomitant]
     Active Substance: GABAPENTIN
  13. ASPIRIN (BABY) [Concomitant]
  14. COUMADIN [Concomitant]
     Active Substance: WARFARIN SODIUM
  15. IRON [Concomitant]
     Active Substance: IRON

REACTIONS (9)
  - Rehabilitation therapy [Unknown]
  - Asthenia [Unknown]
  - Dizziness [Unknown]
  - Gastritis [Unknown]
  - Blood disorder [Unknown]
  - Internal haemorrhage [Unknown]
  - Small intestine ulcer [Unknown]
  - Thrombosis [Unknown]
  - Hospitalisation [Recovering/Resolving]

NARRATIVE: CASE EVENT DATE: 20140728
